FAERS Safety Report 20381062 (Version 1)
Quarter: 2022Q1

REPORT INFORMATION
  Report Type: Report from Study
  Country: US (occurrence: US)
  Receive Date: 20220127
  Receipt Date: 20220127
  Transmission Date: 20220423
  Serious: Yes (Hospitalization, Other)
  Sender: FDA-Public Use
  Company Number: US-TAKEDA-US201608107

PATIENT
  Age: 72 Year
  Sex: Female
  Weight: 44.89 kg

DRUGS (46)
  1. TEDUGLUTIDE [Suspect]
     Active Substance: TEDUGLUTIDE
     Indication: Short-bowel syndrome
     Dosage: 2.35 MG, 1X/DAY:QD
     Route: 058
     Dates: start: 20131021, end: 20141029
  2. TEDUGLUTIDE [Suspect]
     Active Substance: TEDUGLUTIDE
     Indication: Short-bowel syndrome
     Dosage: 2.35 MG, 1X/DAY:QD
     Route: 058
     Dates: start: 20131021, end: 20141029
  3. TEDUGLUTIDE [Suspect]
     Active Substance: TEDUGLUTIDE
     Indication: Short-bowel syndrome
     Dosage: 2.35 MG, 1X/DAY:QD
     Route: 058
     Dates: start: 20131021, end: 20141029
  4. TEDUGLUTIDE [Suspect]
     Active Substance: TEDUGLUTIDE
     Indication: Short-bowel syndrome
     Dosage: 2.35 MG, 1X/DAY:QD
     Route: 058
     Dates: start: 20131021, end: 20141029
  5. TEDUGLUTIDE [Suspect]
     Active Substance: TEDUGLUTIDE
     Dosage: 2.35 MILLIGRAM, 3/WEEK
     Route: 065
     Dates: start: 20141125, end: 20151216
  6. TEDUGLUTIDE [Suspect]
     Active Substance: TEDUGLUTIDE
     Dosage: 2.35 MILLIGRAM, 3/WEEK
     Route: 065
     Dates: start: 20141125, end: 20151216
  7. TEDUGLUTIDE [Suspect]
     Active Substance: TEDUGLUTIDE
     Dosage: 2.35 MILLIGRAM, 3/WEEK
     Route: 065
     Dates: start: 20141125, end: 20151216
  8. TEDUGLUTIDE [Suspect]
     Active Substance: TEDUGLUTIDE
     Dosage: 2.35 MILLIGRAM, 3/WEEK
     Route: 065
     Dates: start: 20141125, end: 20151216
  9. TEDUGLUTIDE [Suspect]
     Active Substance: TEDUGLUTIDE
     Dosage: 2.35 MG, 3 DOSES PER WEEK
     Route: 058
     Dates: start: 20141209
  10. TEDUGLUTIDE [Suspect]
     Active Substance: TEDUGLUTIDE
     Dosage: 2.35 MG, 3 DOSES PER WEEK
     Route: 058
     Dates: start: 20141209
  11. TEDUGLUTIDE [Suspect]
     Active Substance: TEDUGLUTIDE
     Dosage: 2.35 MG, 3 DOSES PER WEEK
     Route: 058
     Dates: start: 20141209
  12. TEDUGLUTIDE [Suspect]
     Active Substance: TEDUGLUTIDE
     Dosage: 2.35 MG, 3 DOSES PER WEEK
     Route: 058
     Dates: start: 20141209
  13. TEDUGLUTIDE [Suspect]
     Active Substance: TEDUGLUTIDE
     Dosage: 2.35 MILLIGRAM, 3/WEEK
     Route: 065
     Dates: start: 20160719, end: 20161201
  14. TEDUGLUTIDE [Suspect]
     Active Substance: TEDUGLUTIDE
     Dosage: 2.35 MILLIGRAM, 3/WEEK
     Route: 065
     Dates: start: 20160719, end: 20161201
  15. TEDUGLUTIDE [Suspect]
     Active Substance: TEDUGLUTIDE
     Dosage: 2.35 MILLIGRAM, 3/WEEK
     Route: 065
     Dates: start: 20160719, end: 20161201
  16. TEDUGLUTIDE [Suspect]
     Active Substance: TEDUGLUTIDE
     Dosage: 2.35 MILLIGRAM, 3/WEEK
     Route: 065
     Dates: start: 20160719, end: 20161201
  17. TEDUGLUTIDE [Suspect]
     Active Substance: TEDUGLUTIDE
     Dosage: 2.35 MILLIGRAM, 3/WEEK
     Route: 065
     Dates: start: 20161215, end: 20170817
  18. TEDUGLUTIDE [Suspect]
     Active Substance: TEDUGLUTIDE
     Dosage: 2.35 MILLIGRAM, 3/WEEK
     Route: 065
     Dates: start: 20161215, end: 20170817
  19. TEDUGLUTIDE [Suspect]
     Active Substance: TEDUGLUTIDE
     Dosage: 2.35 MILLIGRAM, 3/WEEK
     Route: 065
     Dates: start: 20161215, end: 20170817
  20. TEDUGLUTIDE [Suspect]
     Active Substance: TEDUGLUTIDE
     Dosage: 2.35 MILLIGRAM, 3/WEEK
     Route: 065
     Dates: start: 20161215, end: 20170817
  21. TEDUGLUTIDE [Suspect]
     Active Substance: TEDUGLUTIDE
     Dosage: 2.35 MILLIGRAM, QD
     Route: 065
     Dates: start: 20170901, end: 20170914
  22. TEDUGLUTIDE [Suspect]
     Active Substance: TEDUGLUTIDE
     Dosage: 2.35 MILLIGRAM, QD
     Route: 065
     Dates: start: 20170901, end: 20170914
  23. TEDUGLUTIDE [Suspect]
     Active Substance: TEDUGLUTIDE
     Dosage: 2.35 MILLIGRAM, QD
     Route: 065
     Dates: start: 20170901, end: 20170914
  24. TEDUGLUTIDE [Suspect]
     Active Substance: TEDUGLUTIDE
     Dosage: 2.35 MILLIGRAM, QD
     Route: 065
     Dates: start: 20170901, end: 20170914
  25. TEDUGLUTIDE [Suspect]
     Active Substance: TEDUGLUTIDE
     Dosage: 2.35 MILLIGRAM, QD
     Route: 065
     Dates: start: 20170928, end: 20180412
  26. TEDUGLUTIDE [Suspect]
     Active Substance: TEDUGLUTIDE
     Dosage: 2.35 MILLIGRAM, QD
     Route: 065
     Dates: start: 20170928, end: 20180412
  27. TEDUGLUTIDE [Suspect]
     Active Substance: TEDUGLUTIDE
     Dosage: 2.35 MILLIGRAM, QD
     Route: 065
     Dates: start: 20170928, end: 20180412
  28. TEDUGLUTIDE [Suspect]
     Active Substance: TEDUGLUTIDE
     Dosage: 2.35 MILLIGRAM, QD
     Route: 065
     Dates: start: 20170928, end: 20180412
  29. TPN [Concomitant]
     Active Substance: AMINO ACIDS\DEXTROSE\ELECTROLYTES NOS\SOYBEAN OIL
     Indication: Nutritional supplementation
     Dosage: 2 L, 6 DAYS A WEEK
     Route: 051
     Dates: start: 20141222
  30. TPN [Concomitant]
     Active Substance: AMINO ACIDS\DEXTROSE\ELECTROLYTES NOS\SOYBEAN OIL
     Dosage: 1.8 L, 1X/DAY:QD
     Route: 051
     Dates: start: 20140715, end: 20141222
  31. TPN [Concomitant]
     Active Substance: AMINO ACIDS\DEXTROSE\ELECTROLYTES NOS\SOYBEAN OIL
     Dosage: 1.8 L, 6 DAYS A WEEK
     Route: 051
     Dates: start: 20140616, end: 20140715
  32. TPN [Concomitant]
     Active Substance: AMINO ACIDS\DEXTROSE\ELECTROLYTES NOS\SOYBEAN OIL
     Dosage: 2 L, 6 DAYS A WEEK
     Route: 051
     Dates: start: 20140602, end: 20140616
  33. TPN [Concomitant]
     Active Substance: AMINO ACIDS\DEXTROSE\ELECTROLYTES NOS\SOYBEAN OIL
     Dosage: 2.2 L, 6 DAYS A WEEK
     Route: 051
     Dates: start: 20140424, end: 20140602
  34. MIRTAZAPINE [Concomitant]
     Active Substance: MIRTAZAPINE
     Indication: Decreased appetite
     Dosage: 50 MG, 1X/DAY:QD
     Route: 048
     Dates: start: 2014
  35. CHOLECALCIFEROL [Concomitant]
     Active Substance: CHOLECALCIFEROL
     Indication: Vitamin D deficiency
     Dosage: 2000 IU, 1X/DAY:QD
     Route: 048
     Dates: start: 201205, end: 20141029
  36. AZATHIOPRINE [Concomitant]
     Active Substance: AZATHIOPRINE
     Indication: Crohn^s disease
     Dosage: 50 MG, 3X/DAY:TID
     Route: 048
     Dates: start: 1967
  37. OCTREOTIDE ACETATE [Concomitant]
     Active Substance: OCTREOTIDE ACETATE
     Indication: Diarrhoea
     Dosage: 0.05 MG, 3X/DAY:TID
     Route: 058
  38. PHOSPHA 250 NEUTRAL [Concomitant]
     Active Substance: POTASSIUM PHOSPHATE, MONOBASIC\SODIUM PHOSPHATE, DIBASIC, ANHYDROUS\SODIUM PHOSPHATE, MONOBASIC, MON
     Indication: Nutritional supplementation
     Dosage: 250 MG, 2X/DAY:BID
     Route: 048
  39. CYANOCOBALAMIN [Concomitant]
     Active Substance: CYANOCOBALAMIN
     Indication: Vitamin B12 deficiency
     Dosage: 1000 MG, 2X/DAY:BID
     Route: 030
  40. THIAMINE HYDROCHLORIDE [Concomitant]
     Active Substance: THIAMINE HYDROCHLORIDE
     Indication: Vitamin B1 deficiency
     Dosage: 100 MG, ONE DOSE
     Route: 030
  41. LOPERAMIDE [Concomitant]
     Active Substance: LOPERAMIDE
     Indication: Diarrhoea
     Dosage: 2 MG, 3X/DAY:TID
     Route: 048
  42. OPIUM [Concomitant]
     Active Substance: OPIUM
     Indication: Diarrhoea
     Dosage: 1 ML, 4X/DAY:QID
     Route: 048
  43. VITAMIN A [Concomitant]
     Active Substance: VITAMIN A
     Indication: Vitamin A deficiency
     Dosage: 50 INTERNATIONAL UNIT, QD
     Route: 048
     Dates: start: 20200422
  44. LOSARTAN [Concomitant]
     Active Substance: LOSARTAN
     Indication: Hypertension
     Dosage: 25 MILLIGRAM, QD
     Route: 048
     Dates: start: 20181015
  45. CIPROFLOXACIN [Concomitant]
     Active Substance: CIPROFLOXACIN
     Indication: Device related infection
     Dosage: 500 MILLIGRAM, BID
     Route: 048
     Dates: start: 20170628, end: 20170712
  46. TRIFLURIDINE [Concomitant]
     Active Substance: TRIFLURIDINE
     Indication: Conjunctivitis viral
     Dosage: 1 DOSAGE FORM, 5 TIMES A DAY
     Route: 047
     Dates: start: 20160623, end: 20160628

REACTIONS (1)
  - Bacteraemia [Recovered/Resolved]

NARRATIVE: CASE EVENT DATE: 20151006
